FAERS Safety Report 7124016-X (Version None)
Quarter: 2010Q4

REPORT INFORMATION
  Report Type: 
  Country: None (occurrence: None)
  Receive Date: 20101126
  Receipt Date: 20101119
  Transmission Date: 20110411
  Serious: No
  Sender: FDA-Public Use
  Company Number: US-PFIZER INC-2010153685

PATIENT
  Sex: Female
  Weight: 69.8 kg

DRUGS (2)
  1. LYBREL [Suspect]
     Indication: OFF LABEL USE
     Dosage: UNK MG, 1X/DAY
     Route: 048
     Dates: start: 20100101
  2. LYBREL [Suspect]
     Indication: ENDOMETRIOSIS

REACTIONS (11)
  - ARTHRALGIA [None]
  - BONE PAIN [None]
  - CYSTITIS [None]
  - DYSMENORRHOEA [None]
  - MUSCULOSKELETAL PAIN [None]
  - NAUSEA [None]
  - NECK PAIN [None]
  - PAIN IN EXTREMITY [None]
  - PIGMENTATION DISORDER [None]
  - VULVOVAGINAL BURNING SENSATION [None]
  - WEIGHT INCREASED [None]
